FAERS Safety Report 8996689 (Version 1)
Quarter: 2012Q4

REPORT INFORMATION
  Report Type: Spontaneous
  Country: ES (occurrence: None)
  Receive Date: 20121220
  Receipt Date: 20121220
  Transmission Date: 20130627
  Serious: Yes (Other)
  Sender: FDA-Public Use
  Company Number: ES-ACCORD-015466

PATIENT
  Age: 40 Year
  Sex: Female
  Weight: 56 kg

DRUGS (4)
  1. PACLITAXEL(PACLITAXEL) [Suspect]
     Indication: BREAST CANCER
     Route: 042
     Dates: start: 20121120, end: 20121120
  2. POLARAMINE(POLARAMINE) [Concomitant]
  3. RANITIDINE HYDROCHLORIDE(RANITIDINE HYDROCHLORIDE) [Concomitant]
  4. FORTECORTIN(FORTECORTIN) [Concomitant]

REACTIONS (2)
  - Hypersensitivity [None]
  - Pain [None]
